FAERS Safety Report 8337666-X (Version None)
Quarter: 2012Q2

REPORT INFORMATION
  Report Type: 
  Country: None (occurrence: None)
  Receive Date: 20120504
  Receipt Date: 20120504
  Transmission Date: 20120825
  Serious: No
  Sender: FDA-Public Use
  Company Number: None

PATIENT
  Sex: Female
  Weight: 140.61 kg

DRUGS (2)
  1. VICTOZA [Suspect]
     Indication: TYPE 2 DIABETES MELLITUS
     Dosage: |DOSAGETEXT: 1.8 MG||STRENGTH: 1.8 MG||FREQ: ONCE PER DAY||ROUTE: SUBCUTANEOUS|
     Route: 058
     Dates: start: 20111001, end: 20120320
  2. METFORMIN HCL [Concomitant]
     Route: 048

REACTIONS (5)
  - ABDOMINAL PAIN [None]
  - NAUSEA [None]
  - HEPATOBILIARY SCAN ABNORMAL [None]
  - VOMITING [None]
  - FLATULENCE [None]
